FAERS Safety Report 6753812-3 (Version None)
Quarter: 2010Q2

REPORT INFORMATION
  Report Type: 
  Country: None (occurrence: None)
  Receive Date: 20100603
  Receipt Date: 20100528
  Transmission Date: 20101027
  Serious: Yes (Death, Other)
  Sender: FDA-Public Use
  Company Number: FR-BAYER-201026700GPV

PATIENT
  Age: 51 Year
  Sex: Male

DRUGS (16)
  1. CIFLOX [Suspect]
     Indication: RESPIRATORY TRACT INFECTION
     Route: 042
     Dates: start: 20070401
  2. TAZOCILLINE [Suspect]
     Indication: RESPIRATORY TRACT INFECTION
     Route: 042
     Dates: start: 20070327
  3. VANCOMYCIN HCL [Suspect]
     Indication: RESPIRATORY TRACT INFECTION
     Route: 042
     Dates: start: 20070327, end: 20070403
  4. AMIKIN [Suspect]
     Indication: RESPIRATORY TRACT INFECTION
     Route: 042
     Dates: start: 20070323, end: 20070409
  5. HEPARINE SODIQUE [Concomitant]
     Route: 042
     Dates: end: 20070417
  6. ZYVOXID [Concomitant]
     Indication: RESPIRATORY TRACT INFECTION
     Route: 042
  7. HYPNOVEL [Concomitant]
  8. SUFENTA PRESERVATIVE FREE [Concomitant]
  9. NIMBEX [Concomitant]
  10. BUMEX [Concomitant]
  11. NORADRENALINE [Concomitant]
  12. ERYTHROCINE [Concomitant]
  13. SURBRONC [Concomitant]
  14. MOPRAL [Concomitant]
  15. LOVENOX [Concomitant]
  16. CALCIPARINE [Concomitant]

REACTIONS (7)
  - CYTOLYTIC HEPATITIS [None]
  - DERMATITIS EXFOLIATIVE [None]
  - HAEMATURIA [None]
  - MONONUCLEOSIS SYNDROME [None]
  - PANCYTOPENIA [None]
  - RECTAL HAEMORRHAGE [None]
  - RENAL FAILURE ACUTE [None]
